FAERS Safety Report 6719020-7 (Version None)
Quarter: 2010Q2

REPORT INFORMATION
  Report Type: 
  Country: None (occurrence: None)
  Receive Date: 20100511
  Receipt Date: 20100503
  Transmission Date: 20101027
  Serious: Yes (Other)
  Sender: FDA-Public Use
  Company Number: FR-JNJFOC-20100501377

PATIENT
  Age: 93 Year
  Sex: Female
  Weight: 40 kg

DRUGS (1)
  1. DURAGESIC-100 [Suspect]
     Indication: ARTERITIS
     Route: 062

REACTIONS (2)
  - ABNORMAL BEHAVIOUR [None]
  - HALLUCINATION [None]
